FAERS Safety Report 24032446 (Version 2)
Quarter: 2024Q3

REPORT INFORMATION
  Report Type: Spontaneous
  Country: TR (occurrence: TR)
  Receive Date: 20240701
  Receipt Date: 20240801
  Transmission Date: 20241016
  Serious: Yes (Other)
  Sender: ABBVIE
  Company Number: TR-ABBVIE-5818979

PATIENT
  Age: 43 Year
  Sex: Female
  Weight: 62 kg

DRUGS (2)
  1. LEUPROLIDE ACETATE [Suspect]
     Active Substance: ISOPROPYL ALCOHOL\LEUPROLIDE ACETATE
     Indication: Breast cancer
     Dosage: FORM STRENGTH: 11.25 MILLIGRAM?DURATION TEXT: A TOTAL OF 4 DOSES WERE TAKEN
     Route: 058
     Dates: start: 202306, end: 20240725
  2. TAMOXIFEN [Concomitant]
     Active Substance: TAMOXIFEN
     Indication: Breast cancer
     Dosage: FORM STRENGTH: 20 MILLIGRAM
     Route: 048
     Dates: start: 202406

REACTIONS (3)
  - Uterine enlargement [Recovered/Resolved]
  - Injection site mass [Recovered/Resolved]
  - Drug ineffective [Recovered/Resolved]

NARRATIVE: CASE EVENT DATE: 20230901
